FAERS Safety Report 18054434 (Version 1)
Quarter: 2020Q3

REPORT INFORMATION
  Report Type: Spontaneous
  Country: US (occurrence: US)
  Receive Date: 20200721
  Receipt Date: 20200721
  Transmission Date: 20201103
  Serious: Yes (Death)
  Sender: FDA-Public Use
  Company Number: None

PATIENT
  Age: 59 Year
  Sex: Female
  Weight: 76.2 kg

DRUGS (36)
  1. BENZONATATE. [Concomitant]
     Active Substance: BENZONATATE
  2. DEXAMETHASONE. [Concomitant]
     Active Substance: DEXAMETHASONE
  3. DIPHENHYDRAMINE. [Concomitant]
     Active Substance: DIPHENHYDRAMINE
  4. INSULIN DETEMIR [Concomitant]
     Active Substance: INSULIN DETEMIR
  5. INSULIN, REGULAR [Concomitant]
     Active Substance: INSULIN NOS
  6. ISOSORBIDE MONONITRATE. [Concomitant]
     Active Substance: ISOSORBIDE MONONITRATE
  7. METROPROLOL SUCCINATE [Concomitant]
  8. REMDESIVIR SOLUTION 100MG VIAL [Suspect]
     Active Substance: REMDESIVIR
     Indication: COVID-19 PNEUMONIA
     Dosage: FREQUENCY: ONCE
     Route: 042
     Dates: start: 20200627, end: 20200627
  9. ALBUTEROL. [Concomitant]
     Active Substance: ALBUTEROL
  10. ASPIRIN. [Concomitant]
     Active Substance: ASPIRIN
  11. CALCITRIOL. [Concomitant]
     Active Substance: CALCITRIOL
  12. ONDANSETRON [Concomitant]
     Active Substance: ONDANSETRON
  13. VENLAFAXINE [Concomitant]
     Active Substance: VENLAFAXINE HYDROCHLORIDE
  14. ATORVASTATIN [Concomitant]
     Active Substance: ATORVASTATIN
  15. CHLORHEXIDINE [Concomitant]
     Active Substance: CHLORHEXIDINE
  16. FLUCONAZOLE. [Concomitant]
     Active Substance: FLUCONAZOLE
  17. FUROSEMIDE. [Concomitant]
     Active Substance: FUROSEMIDE
  18. PROPAFENONE. [Concomitant]
     Active Substance: PROPAFENONE
  19. SEVALAMER CARBONATE [Concomitant]
  20. TERAZOSIN [Concomitant]
     Active Substance: TERAZOSIN HYDROCHLORIDE
  21. VANCOMYCIN [Concomitant]
     Active Substance: VANCOMYCIN
  22. CLORTIMAZOLE [Concomitant]
  23. REMDESIVIR SOLUTION 100MG VIAL [Suspect]
     Active Substance: REMDESIVIR
     Indication: COVID-19 PNEUMONIA
     Route: 042
     Dates: start: 20200628, end: 20200706
  24. APIXABAN [Concomitant]
     Active Substance: APIXABAN
  25. METOLAZONE. [Concomitant]
     Active Substance: METOLAZONE
  26. PANTOPRAZOLE [Concomitant]
     Active Substance: PANTOPRAZOLE
  27. INSULINE ASPART [Concomitant]
  28. ACETAMINOPHEN. [Concomitant]
     Active Substance: ACETAMINOPHEN
  29. CEFTRIAXONE. [Concomitant]
     Active Substance: CEFTRIAXONE
  30. EPOETIN ALFA?EPBX. [Concomitant]
     Active Substance: EPOETIN ALFA-EPBX
  31. MUPIROCIN. [Concomitant]
     Active Substance: MUPIROCIN
  32. TRAZODONE [Concomitant]
     Active Substance: TRAZODONE HYDROCHLORIDE
  33. CLOPIDOGREL [Concomitant]
     Active Substance: CLOPIDOGREL BISULFATE
  34. MELATONIN [Concomitant]
     Active Substance: MELATONIN
  35. MIDODRINE [Concomitant]
     Active Substance: MIDODRINE
  36. NOREPINEPHRINE. [Concomitant]
     Active Substance: NOREPINEPHRINE

REACTIONS (3)
  - Arrhythmia [None]
  - Cardiac arrest [None]
  - Heart rate decreased [None]

NARRATIVE: CASE EVENT DATE: 20200713
